FAERS Safety Report 9206465 (Version 1)
Quarter: 2013Q2

REPORT INFORMATION
  Report Type: Spontaneous
  Country: FR (occurrence: FR)
  Receive Date: 20130403
  Receipt Date: 20130403
  Transmission Date: 20140414
  Serious: Yes (Other)
  Sender: FDA-Public Use
  Company Number: FR-PFIZER INC-2013102823

PATIENT
  Sex: Female

DRUGS (1)
  1. CRIZOTINIB [Suspect]
     Dosage: UNK

REACTIONS (3)
  - Polycystic liver disease [Unknown]
  - Haemorrhagic cyst [Unknown]
  - Abdominal pain [Unknown]
